FAERS Safety Report 5251922-3 (Version None)
Quarter: 2007Q1

REPORT INFORMATION
  Report Type: 
  Country: None (occurrence: None)
  Receive Date: 20070223
  Receipt Date: 20070214
  Transmission Date: 20070707
  Serious: Yes (Death)
  Sender: FDA-Public Use
  Company Number: 236691

PATIENT
  Age: 92 Year
  Sex: Male

DRUGS (8)
  1. RANIBIZUMAB(RANIBIZUMAB) PWDR + SOLVENT, INJECTION SOLN [Suspect]
     Indication: MACULAR DEGENERATION
     Dosage: INTRAVITREAL
     Route: 050
     Dates: start: 20060418
  2. ZOCOR [Concomitant]
  3. COREG [Concomitant]
  4. FUROSEMIDE [Concomitant]
  5. LISINOPRIL [Concomitant]
  6. ASPIRIN [Concomitant]
  7. NITROGLYCERIN [Concomitant]
  8. LIPITOR [Concomitant]

REACTIONS (1)
  - DEATH [None]
